FAERS Safety Report 4436778-0 (Version None)
Quarter: 2004Q3

REPORT INFORMATION
  Report Type: 
  Country: None (occurrence: None)
  Receive Date: 20040830
  Receipt Date: 20040527
  Transmission Date: 20050211
  Serious: Yes (Hospitalization, Other)
  Sender: FDA-Public Use
  Company Number: PHNU2004DE01965

PATIENT
  Age: 46 Year
  Sex: Female
  Weight: 62 kg

DRUGS (5)
  1. VOLTAREN [Suspect]
     Indication: INTERVERTEBRAL DISC PROTRUSION
     Dosage: 75MGPRN
     Route: 048
     Dates: start: 20040522, end: 20040525
  2. VOLTAREN [Suspect]
     Indication: INTERVERTEBRAL DISC PROTRUSION
     Dosage: 100MG, PRN
     Route: 048
     Dates: start: 20040512, end: 20040526
  3. DIPYRONE INJ [Concomitant]
  4. TRAMAL [Concomitant]
  5. VOLTAREN [Suspect]
     Indication: INTERVERTEBRAL DISC PROTRUSION
     Dosage: 50MGPRN
     Route: 048
     Dates: start: 20040512, end: 20040526

REACTIONS (5)
  - C-REACTIVE PROTEIN INCREASED [None]
  - COLITIS [None]
  - CONSTIPATION [None]
  - DIARRHOEA [None]
  - LEUKOCYTOSIS [None]
